FAERS Safety Report 13932640 (Version 1)
Quarter: 2017Q3

REPORT INFORMATION
  Report Type: Report from Study
  Country: US (occurrence: US)
  Receive Date: 20170904
  Receipt Date: 20170904
  Transmission Date: 20171127
  Serious: Yes (Other)
  Sender: FDA-Public Use
  Company Number: US-ROCHE-1987335

PATIENT

DRUGS (3)
  1. ALTEPLASE. [Suspect]
     Active Substance: ALTEPLASE
     Indication: ACUTE MYOCARDIAL INFARCTION
     Dosage: OVER 60 MIN
     Route: 042
  2. ALTEPLASE. [Suspect]
     Active Substance: ALTEPLASE
     Route: 040
  3. STREPTOKINASE [Suspect]
     Active Substance: STREPTOKINASE
     Indication: ACUTE MYOCARDIAL INFARCTION
     Dosage: 1.5 MILLION U, CONCOMITANTLY OVER 60 MIN
     Route: 065

REACTIONS (4)
  - Haemorrhage [Unknown]
  - Haematoma [Unknown]
  - Gastrointestinal haemorrhage [Unknown]
  - Haematuria [Unknown]
